FAERS Safety Report 6590681-9 (Version None)
Quarter: 2010Q1

REPORT INFORMATION
  Report Type: 
  Country: None (occurrence: None)
  Receive Date: 20100219
  Receipt Date: 20100211
  Transmission Date: 20100710
  Serious: Yes (Other)
  Sender: FDA-Public Use
  Company Number: B0633006A

PATIENT
  Sex: Female

DRUGS (7)
  1. ZOPHREN [Suspect]
     Indication: PREMEDICATION
     Dosage: 8MG PER DAY
     Route: 042
     Dates: start: 19970101, end: 19970101
  2. FLUORO-URACILE [Suspect]
     Indication: BREAST CANCER
     Route: 042
  3. FARMORUBICINE [Suspect]
     Indication: BREAST CANCER
     Dosage: 170MG PER DAY
     Route: 042
     Dates: start: 19970101, end: 19970101
  4. ENDOXAN [Suspect]
     Indication: BREAST CANCER
     Dosage: 850MG PER DAY
     Route: 042
     Dates: start: 19970101, end: 19970101
  5. NOLVADEX [Suspect]
     Indication: BREAST CANCER
     Route: 048
  6. AMAREL [Concomitant]
     Route: 065
  7. METFORMIN HCL [Concomitant]
     Route: 065

REACTIONS (1)
  - CONGESTIVE CARDIOMYOPATHY [None]
